FAERS Safety Report 12166529 (Version 3)
Quarter: 2016Q2

REPORT INFORMATION
  Report Type: Spontaneous
  Country: NO (occurrence: NO)
  Receive Date: 20160309
  Receipt Date: 20160405
  Transmission Date: 20160815
  Serious: Yes (Death, Hospitalization)
  Sender: FDA-Public Use
  Company Number: NO-ROCHE-1723734

PATIENT
  Age: 87 Year
  Sex: Female

DRUGS (6)
  1. MABTHERA [Suspect]
     Active Substance: RITUXIMAB
     Route: 042
  2. MABTHERA [Suspect]
     Active Substance: RITUXIMAB
     Dosage: RECEIVED IN /FEB/2014 (TWO TIMES 2A AND 2B), IN /OCT/2014 AND LAST DOSE WAS IN /OCT/2015
     Route: 042
     Dates: start: 2007
  3. PROLIA [Concomitant]
     Active Substance: DENOSUMAB
     Indication: OSTEOPOROSIS
     Route: 058
  4. PREDNISOLON [Concomitant]
     Active Substance: PREDNISOLONE
     Indication: RHEUMATOID ARTHRITIS
     Route: 048
  5. METHOTREXATE [Suspect]
     Active Substance: METHOTREXATE
     Indication: RHEUMATOID ARTHRITIS
     Route: 048
  6. MABTHERA [Suspect]
     Active Substance: RITUXIMAB
     Indication: RHEUMATOID ARTHRITIS
     Route: 042
     Dates: start: 2014

REACTIONS (4)
  - Neutropenic sepsis [Fatal]
  - Aplastic anaemia [Fatal]
  - C-reactive protein increased [Unknown]
  - Pancytopenia [Fatal]

NARRATIVE: CASE EVENT DATE: 20160306
